FAERS Safety Report 9251798 (Version 1)
Quarter: 2013Q2

REPORT INFORMATION
  Report Type: Spontaneous
  Country: US (occurrence: US)
  Receive Date: 20130424
  Receipt Date: 20130424
  Transmission Date: 20140414
  Serious: No
  Sender: FDA-Public Use
  Company Number: US-PFIZER INC-2013125053

PATIENT
  Age: 73 Year
  Sex: Female
  Weight: 83.9 kg

DRUGS (3)
  1. PROCARDIA XL [Suspect]
     Indication: HYPERTENSION
     Dosage: 60 MG, 1X/DAY
     Route: 048
     Dates: end: 2012
  2. PROCARDIA XL [Suspect]
     Dosage: 60 MG, ALTERNATE DAY
  3. GLUCOTROL [Concomitant]
     Indication: DIABETES MELLITUS
     Dosage: 5 MG, 1X/DAY

REACTIONS (2)
  - Incorrect dose administered [Unknown]
  - Malaise [Not Recovered/Not Resolved]
